FAERS Safety Report 21184287 (Version 1)
Quarter: 2022Q3

REPORT INFORMATION
  Report Type: Spontaneous
  Country: BG (occurrence: BG)
  Receive Date: 20220808
  Receipt Date: 20220808
  Transmission Date: 20221027
  Serious: Yes (Other)
  Sender: FDA-Public Use
  Company Number: BG-ASTELLAS-2022US027699

PATIENT
  Age: 83 Year
  Sex: Male

DRUGS (3)
  1. ELIGARD [Suspect]
     Active Substance: LEUPROLIDE ACETATE
     Indication: Prostate cancer
     Dosage: UNK UNK, UNKNOWN FREQ.
     Route: 065
     Dates: start: 20180621
  2. ENZALUTAMIDE [Suspect]
     Active Substance: ENZALUTAMIDE
     Indication: Prostate cancer
     Dosage: UNK UNK, IN STANDARD DOSAGE (21 COURSES)
     Route: 065
     Dates: start: 20200330
  3. BICALUTAMIDE [Concomitant]
     Active Substance: BICALUTAMIDE
     Indication: Prostate cancer
     Dosage: UNK UNK, UNKNOWN FREQ.
     Route: 065
     Dates: start: 20180621

REACTIONS (1)
  - Cardiovascular disorder [Unknown]
